FAERS Safety Report 8665581 (Version 3)
Quarter: 2012Q4

REPORT INFORMATION
  Report Type: Report from Study
  Country: US (occurrence: US)
  Receive Date: 20120716
  Receipt Date: 20121213
  Transmission Date: 20130627
  Serious: Yes (Hospitalization)
  Sender: FDA-Public Use
  Company Number: US-ASTELLAS-2012US006077

PATIENT
  Age: 17 Year
  Sex: Male
  Weight: 76 kg

DRUGS (15)
  1. TACROLIMUS OINTMENT [Suspect]
     Indication: DERMATITIS ATOPIC
     Dosage: 0.1 %, 2-3 times per month
     Route: 061
     Dates: start: 20000901
  2. ALBUTEROL HFA [Concomitant]
     Indication: ASTHMA
     Dosage: 90 mcg 10-20 minutes prior to exercise
     Route: 055
  3. ZYRTEC [Concomitant]
     Indication: HYPERSENSITIVITY
     Dosage: 10 mg, UID/QD
     Route: 048
  4. DESOWEN [Concomitant]
     Indication: ECZEMA
     Dosage: 0.05 %, One - two times daily prn
     Route: 061
  5. EPIPEN [Concomitant]
     Indication: HYPERSENSITIVITY
     Dosage: 0.3 mg, prn
     Route: 030
  6. PEPCID                             /00706001/ [Concomitant]
     Indication: PRODUCT USED FOR UNKNOWN INDICATION
     Dosage: 20 mg, QHS
     Route: 048
  7. ATARAX                             /00058401/ [Concomitant]
     Indication: PRURITUS
     Dosage: 50 mg, QHS
     Route: 048
  8. ATARAX                             /00058401/ [Concomitant]
     Dosage: 25 mg, QHS
     Route: 065
  9. PRINIVIL [Concomitant]
     Indication: HYPERTENSION
     Dosage: 7.5 mg, QHS
     Route: 048
  10. PRINIVIL [Concomitant]
     Dosage: 5 mg, UID/QD
     Route: 065
  11. MELATONIN [Concomitant]
     Indication: PRODUCT USED FOR UNKNOWN INDICATION
     Dosage: 3 mg, QHS
     Route: 048
  12. DAILY MULTIVITAMIN [Concomitant]
     Indication: PRODUCT USED FOR UNKNOWN INDICATION
     Dosage: UNK UNK, UID/QD
     Route: 048
  13. MAXALT                             /01406501/ [Concomitant]
     Indication: MIGRAINE
     Dosage: 10 mg, prn
  14. AMITRIPTYLINE [Concomitant]
     Indication: MIGRAINE PROPHYLAXIS
     Dosage: 25 mg, QHS
     Route: 065
  15. ELAVIL                             /00002202/ [Concomitant]
     Indication: MIGRAINE
     Dosage: 50 mg, QHS
     Route: 065

REACTIONS (2)
  - Off label use [Unknown]
  - Psychogenic movement disorder [Unknown]
